FAERS Safety Report 7766124-6 (Version None)
Quarter: 2011Q3

REPORT INFORMATION
  Report Type: 
  Country: None (occurrence: None)
  Receive Date: 20110921
  Receipt Date: 20110916
  Transmission Date: 20111222
  Serious: Yes (Hospitalization, Other)
  Sender: FDA-Public Use
  Company Number: FR-PFIZER INC-2011219688

PATIENT
  Sex: Female

DRUGS (9)
  1. XANAX [Suspect]
     Dosage: 1 G, 3X/DAY
     Route: 064
     Dates: start: 20101102, end: 20110511
  2. XANAX [Suspect]
     Dosage: 80 DF, UNK
     Route: 064
     Dates: start: 20110121, end: 20110121
  3. CHLORPROMAZINE HCL [Concomitant]
     Dosage: 25 MG, 3X/DAY
     Route: 064
     Dates: start: 20100104
  4. METHADONE HCL [Suspect]
     Dosage: 20 MG, 1X/DAY
     Route: 064
     Dates: start: 20090101, end: 20110511
  5. STABLON [Concomitant]
     Dosage: UNK
     Route: 064
     Dates: start: 20110121
  6. NOZINAN [Concomitant]
     Dosage: 100 MG, 4X/DAY
     Route: 064
     Dates: start: 20101103, end: 20101213
  7. CHLORPROMAZINE HCL [Concomitant]
     Dosage: 100 MG, 3X/DAY
     Route: 064
     Dates: start: 20101213, end: 20110106
  8. XANAX [Suspect]
     Dosage: 12 DF, UNK
     Route: 064
     Dates: start: 20101102, end: 20101102
  9. XANAX [Suspect]
     Dosage: 30 DF, UNK
     Route: 064
     Dates: start: 20101228, end: 20101228

REACTIONS (2)
  - MATERNAL EXPOSURE DURING PREGNANCY [None]
  - DRUG WITHDRAWAL SYNDROME NEONATAL [None]
